FAERS Safety Report 9677780 (Version 1)
Quarter: 2013Q4

REPORT INFORMATION
  Report Type: Spontaneous
  Country: US (occurrence: None)
  Receive Date: 20131107
  Receipt Date: 20131107
  Transmission Date: 20140711
  Serious: Yes (Hospitalization)
  Sender: FDA-Public Use
  Company Number: None

PATIENT
  Age: 52 Year
  Sex: Female
  Weight: 51.6 kg

DRUGS (1)
  1. ERIBULIN MESYLATE [Suspect]
     Indication: CERVIX CARCINOMA
     Dates: start: 20130909, end: 20130916

REACTIONS (12)
  - Septic shock [None]
  - Chest discomfort [None]
  - Abdominal discomfort [None]
  - Dysphagia [None]
  - Altered state of consciousness [None]
  - Tachycardia [None]
  - Bradycardia [None]
  - Cough [None]
  - Oral candidiasis [None]
  - Staphylococcus test positive [None]
  - Blood thyroid stimulating hormone decreased [None]
  - Thyroxine decreased [None]
